FAERS Safety Report 12120845 (Version 1)
Quarter: 2016Q1

REPORT INFORMATION
  Report Type: Spontaneous
  Country: US (occurrence: US)
  Receive Date: 20160226
  Receipt Date: 20160226
  Transmission Date: 20160526
  Serious: No
  Sender: FDA-Public Use
  Company Number: US-ALLERGAN-1308068US

PATIENT
  Age: 69 Year
  Sex: Female

DRUGS (2)
  1. REFRESH OPTIVE SENSITIVE [Suspect]
     Active Substance: CARBOXYMETHYLCELLULOSE SODIUM\GLYCERIN
     Indication: DRY EYE
     Dosage: 2 GTT, PRN
     Route: 047
  2. REFRESH PLUS [Concomitant]
     Active Substance: CARBOXYMETHYLCELLULOSE SODIUM
     Indication: DRY EYE

REACTIONS (3)
  - Eye pain [Recovered/Resolved]
  - Abnormal sensation in eye [Recovered/Resolved]
  - Eye irritation [Recovered/Resolved]
